FAERS Safety Report 17893614 (Version 1)
Quarter: 2020Q2

REPORT INFORMATION
  Report Type: Spontaneous
  Country: FR (occurrence: FR)
  Receive Date: 20200615
  Receipt Date: 20200615
  Transmission Date: 20200714
  Serious: Yes (Life-Threatening)
  Sender: FDA-Public Use
  Company Number: FR-CADILA HEALTHCARE LIMITED-FR-ZYDUS-030195

PATIENT

DRUGS (5)
  1. CIPROFLOXACINE [Suspect]
     Active Substance: CIPROFLOXACIN
     Indication: PROSTATITIS
     Dosage: 1000 MILLIGRAM,(INTERVAL :1 DAYS)
     Route: 048
     Dates: start: 20180806, end: 20180807
  2. TAMOXIFEN [Suspect]
     Active Substance: TAMOXIFEN
     Indication: PROSTATE CANCER
     Dosage: 20 MILLIGRAM,(INTERVAL :1 WEEKS)
     Route: 048
     Dates: start: 20180522
  3. BICALUTAMIDE. [Suspect]
     Active Substance: BICALUTAMIDE
     Indication: PROSTATE CANCER
     Dosage: 150 MILLIGRAM,(INTERVAL :1 DAYS)
     Route: 048
     Dates: start: 20180522
  4. XATRAL [Suspect]
     Active Substance: ALFUZOSIN
     Indication: PROSTATE CANCER
     Dosage: ()
     Route: 048
     Dates: start: 20180522
  5. CEFIXIME. [Suspect]
     Active Substance: CEFIXIME
     Indication: PROSTATITIS
     Dosage: 400 MILLIGRAM,(INTERVAL :1 DAYS)
     Route: 048
     Dates: start: 20180806, end: 20180807

REACTIONS (2)
  - Cardiac arrest [Recovered/Resolved]
  - Torsade de pointes [Not Recovered/Not Resolved]

NARRATIVE: CASE EVENT DATE: 20180807
